FAERS Safety Report 16251645 (Version 1)
Quarter: 2019Q2

REPORT INFORMATION
  Report Type: Spontaneous
  Country: US (occurrence: US)
  Receive Date: 20190429
  Receipt Date: 20190429
  Transmission Date: 20190711
  Serious: Yes (Hospitalization)
  Sender: FDA-Public Use
  Company Number: US-JUBILANT CADISTA PHARMACEUTICALS-2019JUB00159

PATIENT
  Age: 94 Year
  Sex: Female
  Weight: 46.71 kg

DRUGS (5)
  1. OXYCODONE [Suspect]
     Active Substance: OXYCODONE
  2. HALDOL [Suspect]
     Active Substance: HALOPERIDOL
  3. OLANZAPINE. [Suspect]
     Active Substance: OLANZAPINE
     Dosage: 20 TABLETS
     Route: 048
  4. UNSPECIFIED STEROID SHOT [Suspect]
     Active Substance: UNSPECIFIED INGREDIENT
  5. OLANZAPINE. [Suspect]
     Active Substance: OLANZAPINE
     Dosage: 10 MG

REACTIONS (11)
  - Product use issue [Unknown]
  - Tremor [Unknown]
  - Dry mouth [Unknown]
  - Drooling [Unknown]
  - Drug ineffective [Unknown]
  - Drug interaction [Unknown]
  - Increased appetite [Unknown]
  - Hospitalisation [Unknown]
  - Product dose omission [Unknown]
  - Abnormal behaviour [Unknown]
  - Posture abnormal [Unknown]
